FAERS Safety Report 22327401 (Version 1)
Quarter: 2023Q2

REPORT INFORMATION
  Report Type: Spontaneous
  Country: US (occurrence: None)
  Receive Date: 20230516
  Receipt Date: 20230516
  Transmission Date: 20230721
  Serious: No
  Sender: FDA-Public Use
  Company Number: 2023A110170

PATIENT
  Sex: Female

DRUGS (3)
  1. PULMICORT TURBUHALER [Suspect]
     Active Substance: BUDESONIDE
     Route: 055
  2. ARNUITY ELLIPTA [Suspect]
     Active Substance: FLUTICASONE FUROATE
  3. ASMANEX [Suspect]
     Active Substance: MOMETASONE FUROATE
     Route: 055
     Dates: start: 202212, end: 202301

REACTIONS (6)
  - Back pain [Unknown]
  - Chest discomfort [Unknown]
  - Dysphagia [Unknown]
  - Asthma [Unknown]
  - Behaviour disorder [Unknown]
  - Intentional product misuse [Unknown]
